FAERS Safety Report 23344631 (Version 1)
Quarter: 2023Q4

REPORT INFORMATION
  Report Type: Spontaneous
  Country: US (occurrence: US)
  Receive Date: 20231228
  Receipt Date: 20231228
  Transmission Date: 20240110
  Serious: No
  Sender: FDA-Public Use
  Company Number: US-JNJFOC-20231257464

PATIENT
  Age: 44 Year
  Sex: Male

DRUGS (1)
  1. OPSUMIT [Suspect]
     Active Substance: MACITENTAN
     Indication: Product used for unknown indication
     Route: 048
     Dates: start: 20230518, end: 20231218

REACTIONS (6)
  - Nasopharyngitis [Unknown]
  - Sinusitis [Unknown]
  - Oropharyngeal pain [Unknown]
  - Ear pain [Unknown]
  - Erythema [Unknown]
  - Hypotension [Unknown]
